FAERS Safety Report 21160031 (Version 1)
Quarter: 2022Q3

REPORT INFORMATION
  Report Type: Report from Study
  Country: US (occurrence: US)
  Receive Date: 20220802
  Receipt Date: 20220802
  Transmission Date: 20221026
  Serious: No
  Sender: FDA-Public Use
  Company Number: US-NOVARTISTESTPH-NVSC2022US173524

PATIENT
  Age: 6 Year
  Sex: Female

DRUGS (2)
  1. ILARIS [Suspect]
     Active Substance: CANAKINUMAB
     Indication: Still^s disease
     Dosage: 105 MG, EVERY 4 WEEKS
     Route: 058
     Dates: start: 20201008
  2. ILARIS [Suspect]
     Active Substance: CANAKINUMAB
     Dosage: 112.5 MG
     Route: 065
     Dates: start: 20220724

REACTIONS (1)
  - Incorrect dose administered [Unknown]

NARRATIVE: CASE EVENT DATE: 20220724
